FAERS Safety Report 23551503 (Version 1)
Quarter: 2024Q1

REPORT INFORMATION
  Report Type: Spontaneous
  Country: HK (occurrence: HK)
  Receive Date: 20240222
  Receipt Date: 20240222
  Transmission Date: 20240410
  Serious: Yes (Other)
  Sender: FDA-Public Use
  Company Number: HK-SUN PHARMACEUTICAL INDUSTRIES LTD-2024RR-432569

PATIENT
  Age: 58 Year
  Sex: Male

DRUGS (4)
  1. ALFACALCIDOL [Suspect]
     Active Substance: ALFACALCIDOL
     Indication: Hepatic cirrhosis
     Dosage: 1 MICROGRAM, BID
     Route: 065
  2. LAMIVUDINE [Suspect]
     Active Substance: LAMIVUDINE
     Indication: Hepatic cirrhosis
     Dosage: 100 MILLIGRAM, QD
     Route: 065
     Dates: start: 2005
  3. ADEFOVIR [Suspect]
     Active Substance: ADEFOVIR
     Indication: Product used for unknown indication
     Dosage: 10 MILLIGRAM, QD
     Route: 065
     Dates: start: 2007
  4. RIVASTIGMINE [Suspect]
     Active Substance: RIVASTIGMINE
     Indication: Parkinsonism
     Dosage: UNK
     Route: 065

REACTIONS (4)
  - Drug resistance [Unknown]
  - Treatment noncompliance [Unknown]
  - Drug ineffective [Unknown]
  - Therapeutic product effect incomplete [Unknown]
